FAERS Safety Report 23359976 (Version 5)
Quarter: 2025Q2

REPORT INFORMATION
  Report Type: Spontaneous
  Country: GB (occurrence: GB)
  Receive Date: 20240103
  Receipt Date: 20250610
  Transmission Date: 20250717
  Serious: Yes (Hospitalization, Other)
  Sender: AMGEN
  Company Number: GB-Vifor (International) Inc.-VIT-2023-10479

PATIENT
  Age: 59 Year
  Sex: Female
  Weight: 77 kg

DRUGS (5)
  1. TAVNEOS [Suspect]
     Active Substance: AVACOPAN
     Indication: Anti-neutrophil cytoplasmic antibody positive vasculitis
     Dosage: 30,MG,BID
     Route: 048
     Dates: start: 20231109
  2. PREDNISOLONE [Concomitant]
     Active Substance: PREDNISOLONE
     Indication: Anti-neutrophil cytoplasmic antibody positive vasculitis
     Dosage: COMPLETION OF PLANNED COURSE
     Route: 048
     Dates: start: 20231110, end: 20231116
  3. PREDNISOLONE [Concomitant]
     Active Substance: PREDNISOLONE
     Dosage: COMPLETION OF PLANNED COURSE
     Route: 048
     Dates: start: 20231117, end: 20231123
  4. CYCLOPHOSPHAMIDE [Concomitant]
     Active Substance: CYCLOPHOSPHAMIDE
     Indication: Anti-neutrophil cytoplasmic antibody positive vasculitis
     Route: 040
     Dates: start: 20231115, end: 20240222
  5. AZATHIOPRINE [Concomitant]
     Active Substance: AZATHIOPRINE
     Indication: Anti-neutrophil cytoplasmic antibody positive vasculitis
     Dosage: 100,MG,QD
     Route: 048
     Dates: start: 20240307

REACTIONS (2)
  - Acute kidney injury [Recovered/Resolved]
  - Syncope [Recovered/Resolved]

NARRATIVE: CASE EVENT DATE: 20231121
